FAERS Safety Report 15235968 (Version 1)
Quarter: 2018Q3

REPORT INFORMATION
  Report Type: Spontaneous
  Country: CN (occurrence: CN)
  Receive Date: 20180803
  Receipt Date: 20180803
  Transmission Date: 20181010
  Serious: Yes (Hospitalization, Other)
  Sender: FDA-Public Use
  Company Number: CN-MYLANLABS-2018M1056094

PATIENT
  Age: 27 Year
  Sex: Female
  Weight: 48 kg

DRUGS (2)
  1. DEXAMETHASONE. [Suspect]
     Active Substance: DEXAMETHASONE
     Indication: ERYTHEMA
     Dosage: 5 MG, QD
     Route: 042
  2. DEXAMETHASONE. [Suspect]
     Active Substance: DEXAMETHASONE
     Indication: FACE OEDEMA

REACTIONS (1)
  - Ectopic ACTH syndrome [Recovered/Resolved]
